FAERS Safety Report 5745017-X (Version None)
Quarter: 2008Q2

REPORT INFORMATION
  Report Type: 
  Country: None (occurrence: None)
  Receive Date: 20080521
  Receipt Date: 20080516
  Transmission Date: 20081010
  Serious: Yes (Hospitalization)
  Sender: FDA-Public Use
  Company Number: PHHO2006DE20673

PATIENT
  Age: 68 Year
  Sex: Female

DRUGS (2)
  1. TASIGNA [Suspect]
     Indication: CHRONIC MYELOID LEUKAEMIA
     Dosage: 600 MG, UNK
     Route: 048
     Dates: start: 20040307, end: 20080317
  2. TASIGNA [Suspect]
     Dosage: NO TREATMENT
     Dates: start: 20080318, end: 20080318

REACTIONS (12)
  - ANGIOPLASTY [None]
  - ARTERIAL OCCLUSIVE DISEASE [None]
  - ARTERIAL STENOSIS LIMB [None]
  - ARTERIAL THERAPEUTIC PROCEDURE [None]
  - CATHETERISATION CARDIAC [None]
  - CORONARY ARTERIAL STENT INSERTION [None]
  - CORONARY ARTERY STENOSIS [None]
  - ECG SIGNS OF MYOCARDIAL ISCHAEMIA [None]
  - ELECTROCARDIOGRAM ST SEGMENT DEPRESSION [None]
  - ENDARTERECTOMY [None]
  - PERIPHERAL ARTERIAL OCCLUSIVE DISEASE [None]
  - TROPONIN T INCREASED [None]
